FAERS Safety Report 15299869 (Version 3)
Quarter: 2022Q1

REPORT INFORMATION
  Report Type: Other
  Country: ES (occurrence: ES)
  Receive Date: 20180821
  Receipt Date: 20220304
  Transmission Date: 20220424
  Serious: Yes (Death, Other)
  Sender: FDA-Public Use
  Company Number: ES-002147023-PHHY2018ES056225

PATIENT
  Age: 18 Year
  Sex: Male
  Weight: 40 kg

DRUGS (15)
  1. RITUXIMAB [Suspect]
     Active Substance: RITUXIMAB
     Indication: Product used for unknown indication
     Dosage: 4 DOSES
     Route: 065
  2. LENIOLISIB [Suspect]
     Active Substance: LENIOLISIB
     Indication: Colitis
     Route: 065
  3. LENIOLISIB [Suspect]
     Active Substance: LENIOLISIB
     Indication: Infection
     Route: 065
  4. LENIOLISIB [Suspect]
     Active Substance: LENIOLISIB
     Indication: Lymphoproliferative disorder
     Route: 065
     Dates: start: 20180705, end: 20180712
  5. LENIOLISIB [Suspect]
     Active Substance: LENIOLISIB
     Indication: Activated PI3 kinase delta syndrome
     Route: 065
  6. RAPAMYCIN [Suspect]
     Active Substance: SIROLIMUS
     Indication: Product used for unknown indication
     Route: 065
  7. PIPERACILLIN SODIUM\TAZOBACTAM SODIUM [Concomitant]
     Active Substance: PIPERACILLIN SODIUM\TAZOBACTAM SODIUM
     Indication: Febrile neutropenia
     Route: 065
  8. GANCICLOVIR [Concomitant]
     Active Substance: GANCICLOVIR
     Indication: Cytomegalovirus enteritis
  9. LABETALOL [Concomitant]
     Active Substance: LABETALOL\LABETALOL HYDROCHLORIDE
     Indication: Hypertension
     Route: 065
     Dates: start: 20180705, end: 20180712
  10. ACYCLOVIR [Concomitant]
     Active Substance: ACYCLOVIR
     Indication: Prophylaxis
     Route: 065
     Dates: start: 20180705, end: 20180712
  11. ANIDULAFUNGIN [Concomitant]
     Active Substance: ANIDULAFUNGIN
     Indication: Fungal infection
  12. METHYLPREDNISOLONE [Concomitant]
     Active Substance: METHYLPREDNISOLONE
     Indication: Product used for unknown indication
     Route: 065
     Dates: start: 20180705
  13. COTRIMOXAZOLE [Concomitant]
     Active Substance: SULFAMETHOXAZOLE\TRIMETHOPRIM
     Indication: Prophylaxis
     Dosage: 160/800 MG
     Route: 065
     Dates: start: 20180705, end: 20180712
  14. LEVOMEPROMAZINE [Concomitant]
     Active Substance: LEVOMEPROMAZINE
     Indication: Anxiety
     Route: 065
     Dates: start: 20180705, end: 20180712
  15. URSODIOL [Concomitant]
     Active Substance: URSODIOL
     Indication: Hyperuricaemia
     Route: 065
     Dates: start: 20180705, end: 20180712

REACTIONS (4)
  - Malnutrition [Fatal]
  - B-cell lymphoma [Fatal]
  - Diabetes mellitus [Unknown]
  - Death [Fatal]
